FAERS Safety Report 6300096-6 (Version None)
Quarter: 2009Q3

REPORT INFORMATION
  Report Type: 
  Country: None (occurrence: None)
  Receive Date: 20090805
  Receipt Date: 20090805
  Transmission Date: 20100115
  Serious: Yes (Hospitalization)
  Sender: FDA-Public Use
  Company Number: None

PATIENT
  Sex: Female
  Weight: 62 kg

DRUGS (1)
  1. CISPLATIN [Suspect]
     Dosage: 66 MG

REACTIONS (5)
  - CLOSTRIDIAL INFECTION [None]
  - DEHYDRATION [None]
  - FAILURE TO THRIVE [None]
  - MALNUTRITION [None]
  - SYNCOPE [None]
